FAERS Safety Report 5309267-9 (Version None)
Quarter: 2007Q2

REPORT INFORMATION
  Report Type: 
  Country: None (occurrence: None)
  Receive Date: 20070427
  Receipt Date: 20070418
  Transmission Date: 20071010
  Serious: Yes (Other)
  Sender: FDA-Public Use
  Company Number: JP-ROCHE-491386

PATIENT
  Age: 13 Year
  Sex: Male
  Weight: 33 kg

DRUGS (4)
  1. TAMIFLU [Suspect]
     Route: 048
     Dates: start: 20070226, end: 20070226
  2. RESPLEN [Concomitant]
     Route: 048
  3. MUCODYNE [Concomitant]
     Route: 048
  4. PERIACTIN [Concomitant]
     Route: 048

REACTIONS (4)
  - ABNORMAL BEHAVIOUR [None]
  - AGGRESSION [None]
  - AMNESIA [None]
  - PSYCHIATRIC SYMPTOM [None]
